FAERS Safety Report 8816282 (Version 1)
Quarter: 2012Q4

REPORT INFORMATION
  Report Type: Spontaneous
  Country: US (occurrence: None)
  Receive Date: 20120928
  Receipt Date: 20120928
  Transmission Date: 20130627
  Serious: No
  Sender: FDA-Public Use
  Company Number: None

PATIENT
  Age: 76 Year
  Sex: Female
  Weight: 65.32 kg

DRUGS (1)
  1. FLUNISOLIDE [Suspect]
     Indication: MULTIPLE ALLERGIES
     Dates: start: 20120910

REACTIONS (1)
  - Nasal discomfort [None]
